FAERS Safety Report 20804637 (Version 1)
Quarter: 2022Q2

REPORT INFORMATION
  Report Type: Spontaneous
  Country: FR (occurrence: FR)
  Receive Date: 20220509
  Receipt Date: 20220509
  Transmission Date: 20220721
  Serious: Yes (Other)
  Sender: FDA-Public Use
  Company Number: None

PATIENT
  Age: 38 Year
  Sex: Female
  Weight: 45 kg

DRUGS (1)
  1. EFFEXOR [Suspect]
     Active Substance: VENLAFAXINE HYDROCHLORIDE
     Indication: Depression
     Dosage: 4 DF, DAILY
     Route: 048
     Dates: start: 20220321, end: 20220412

REACTIONS (16)
  - Hyperacusis [Not Recovered/Not Resolved]
  - Angina pectoris [Recovering/Resolving]
  - Gastrointestinal disorder [Recovering/Resolving]
  - Headache [Recovering/Resolving]
  - Hypokinesia [Not Recovered/Not Resolved]
  - Myoclonus [Not Recovered/Not Resolved]
  - Tremor [Not Recovered/Not Resolved]
  - Abnormal weight gain [Recovering/Resolving]
  - Hypoaesthesia [Recovering/Resolving]
  - Dyskinesia [Not Recovered/Not Resolved]
  - Vision blurred [Not Recovered/Not Resolved]
  - Malaise [Not Recovered/Not Resolved]
  - Insomnia [Recovering/Resolving]
  - Palpitations [Not Recovered/Not Resolved]
  - Hyperresponsive to stimuli [Not Recovered/Not Resolved]
  - Speech disorder [Not Recovered/Not Resolved]

NARRATIVE: CASE EVENT DATE: 20220321
